FAERS Safety Report 7573643-4 (Version None)
Quarter: 2011Q2

REPORT INFORMATION
  Report Type: 
  Country: None (occurrence: None)
  Receive Date: 20110627
  Receipt Date: 20110620
  Transmission Date: 20111010
  Serious: Yes (Hospitalization)
  Sender: FDA-Public Use
  Company Number: HU-ABBOTT-11P-076-0729366-00

PATIENT
  Age: 77 Year
  Sex: Female
  Weight: 43 kg

DRUGS (16)
  1. RENAGEL [Concomitant]
     Indication: HYPERPHOSPHATAEMIA
     Route: 048
  2. ENALAPRIL MALEATE [Concomitant]
     Indication: HYPERTENSION
     Route: 048
  3. FUROSEMIDE [Concomitant]
     Indication: FLUID OVERLOAD
     Route: 048
  4. ESTULIC [Concomitant]
     Indication: HYPERTENSION
     Route: 048
  5. FOLIC ACID [Concomitant]
     Indication: PROPHYLAXIS
     Route: 048
  6. TEGRETOL-XR [Concomitant]
     Indication: POLYNEUROPATHY
     Route: 048
  7. ZEMPLAR [Suspect]
     Indication: RENAL FAILURE CHRONIC
     Dosage: 10 MCG/DAILYSIS 3 X WEEKLY
     Route: 042
     Dates: start: 20110215
  8. TRIMETAZIDINE [Concomitant]
     Indication: ANGINA PECTORIS
     Route: 048
  9. AMLODIPINE [Concomitant]
     Indication: HYPERTENSION
     Route: 048
  10. QUAMATEL [Concomitant]
     Indication: GASTRITIS
     Route: 048
  11. ATORIS [Concomitant]
     Indication: HYPERLIPIDAEMIA
     Route: 048
  12. VITAMIN D [Concomitant]
     Indication: VITAMIN D DEFICIENCY
     Route: 048
  13. B VITAMIN COMP [Concomitant]
     Indication: PROPHYLAXIS
     Route: 048
  14. ASPIRINE PROTECT [Concomitant]
     Indication: PROPHYLAXIS
     Route: 048
  15. EZETIMIBE [Concomitant]
     Indication: HYPERLIPIDAEMIA
     Route: 048
  16. TALLITON [Concomitant]
     Indication: HYPERTENSION
     Route: 048

REACTIONS (3)
  - PNEUMONIA [None]
  - EMPHYSEMA [None]
  - ATRIAL FIBRILLATION [None]
